FAERS Safety Report 21840629 (Version 3)
Quarter: 2023Q1

REPORT INFORMATION
  Report Type: Report from Study
  Country: CN (occurrence: CN)
  Receive Date: 20230110
  Receipt Date: 20230327
  Transmission Date: 20230418
  Serious: Yes (Death, Other)
  Sender: FDA-Public Use
  Company Number: CN-BoehringerIngelheim-2022-BI-176186

PATIENT
  Age: 86 Year
  Sex: Male
  Weight: 54 kg

DRUGS (16)
  1. ALTEPLASE [Suspect]
     Active Substance: ALTEPLASE
     Indication: Ischaemic stroke
     Dosage: MOST RECENT DOSE RECEIVED ON 11/JUN/2022
     Route: 042
     Dates: start: 20220611
  2. POTASSIUM CHLORIDE [Concomitant]
     Active Substance: POTASSIUM CHLORIDE
     Indication: Drug therapy
     Route: 042
     Dates: start: 20220612
  3. ESOMEPRAZOLE [Concomitant]
     Active Substance: ESOMEPRAZOLE
     Indication: Prophylaxis
     Dosage: FOA-ENTERIC-COATED TABLET
     Route: 048
     Dates: start: 20220612, end: 20220612
  4. ARGATROBAN [Concomitant]
     Active Substance: ARGATROBAN
     Indication: Anticoagulant therapy
     Route: 065
     Dates: start: 20220612, end: 20220612
  5. .ALPHA.-ASARONE [Concomitant]
     Active Substance: .ALPHA.-ASARONE
     Indication: Productive cough
     Route: 017
     Dates: start: 20220612
  6. PLASMINOGEN [Concomitant]
     Active Substance: PLASMINOGEN
     Indication: Cardiovascular disorder
     Route: 017
     Dates: start: 20220612, end: 20220612
  7. AMBROXOL HYDROCHLORIDE [Concomitant]
     Active Substance: AMBROXOL HYDROCHLORIDE
     Indication: Productive cough
     Route: 017
     Dates: start: 20220612
  8. CEFTAZIDIME [Concomitant]
     Active Substance: CEFTAZIDIME
     Indication: Epilepsy
     Route: 042
     Dates: start: 20220612, end: 20220612
  9. TRYPSIN [Concomitant]
     Active Substance: TRYPSIN
     Indication: Epilepsy
     Route: 050
     Dates: start: 20220612, end: 20220612
  10. ATORVASTATIN CALCIUM [Concomitant]
     Active Substance: ATORVASTATIN CALCIUM
     Indication: Lipids abnormal
     Route: 048
     Dates: start: 20220612
  11. SODIUM LACTATE RINGER^S [Concomitant]
     Indication: Drug therapy
     Route: 042
     Dates: start: 20220612, end: 20220612
  12. VITAMIN C [Concomitant]
     Active Substance: ASCORBIC ACID
     Indication: Drug therapy
     Route: 017
     Dates: start: 20220612
  13. VITAMIN B6 [Concomitant]
     Active Substance: PYRIDOXINE HYDROCHLORIDE
     Indication: Drug therapy
     Route: 017
     Dates: start: 20220612
  14. MANNITOL [Concomitant]
     Active Substance: MANNITOL
     Indication: Drug therapy
     Route: 017
     Dates: start: 20220612, end: 20220612
  15. MANNITOL [Concomitant]
     Active Substance: MANNITOL
     Route: 017
     Dates: start: 20220612
  16. FRUCTOSE\GLYCERIN\SODIUM CHLORIDE [Concomitant]
     Active Substance: FRUCTOSE\GLYCERIN\SODIUM CHLORIDE
     Indication: Drug therapy
     Route: 017
     Dates: start: 20220612

REACTIONS (4)
  - Brain herniation [Fatal]
  - Haemorrhagic cerebral infarction [Fatal]
  - Cardiac failure [Unknown]
  - Urinary occult blood positive [Unknown]

NARRATIVE: CASE EVENT DATE: 20220612
